FAERS Safety Report 7880354-4 (Version None)
Quarter: 2011Q4

REPORT INFORMATION
  Report Type: 
  Country: None (occurrence: None)
  Receive Date: 20111101
  Receipt Date: 20111027
  Transmission Date: 20120403
  Serious: Yes (Death)
  Sender: FDA-Public Use
  Company Number: GXKR2011DK01056

PATIENT
  Sex: Female
  Weight: 80 kg

DRUGS (10)
  1. CYCLOPHOSPHAMIDE [Suspect]
     Dosage: UNK
     Route: 042
     Dates: start: 20110119
  2. ASPIRIN [Concomitant]
     Route: 048
  3. BAXTER A/S [Suspect]
     Dosage: UNK
     Dates: start: 20110119
  4. CYCLOPHOSPHAMIDE [Suspect]
     Indication: BREAST CANCER
     Dosage: 1146 MG, UNK
     Route: 042
     Dates: start: 20101208
  5. RAMIPRIL [Concomitant]
     Route: 048
  6. DOCETAXEL [Suspect]
     Indication: BREAST CANCER
     Dosage: 142 MG, UNK
     Route: 042
     Dates: start: 20101208
  7. PRAVASTATIN [Concomitant]
     Route: 048
  8. LANSOPRAZOLE [Concomitant]
     Route: 048
  9. EZETIMIBE [Concomitant]
     Route: 048
  10. BAXTER A/S [Suspect]
     Indication: BREAST CANCER
     Dosage: UNK
     Dates: start: 20101208

REACTIONS (6)
  - AORTIC STENOSIS [None]
  - CARDIAC ARREST [None]
  - MYOCARDIAL INFARCTION [None]
  - ARTERIOSCLEROSIS CORONARY ARTERY [None]
  - CARDIOMEGALY [None]
  - CORONARY ARTERY STENOSIS [None]
